FAERS Safety Report 9205097 (Version 1)
Quarter: 2013Q2

REPORT INFORMATION
  Report Type: Spontaneous
  Country: BR (occurrence: BR)
  Receive Date: 20130402
  Receipt Date: 20130402
  Transmission Date: 20140414
  Serious: Yes (Other)
  Sender: FDA-Public Use
  Company Number: BR-ABBOTT-13X-020-1069817-00

PATIENT
  Sex: Female
  Weight: 50 kg

DRUGS (3)
  1. DEPAKENE [Suspect]
     Indication: CONVULSION
     Dosage: 250MG/5ML
     Route: 048
     Dates: start: 2002
  2. SODIUM VALPROATE [Suspect]
     Indication: CONVULSION
  3. PHENYTOIN [Concomitant]
     Indication: CONVULSION
     Dosage: 1 TABLET BEFORE SLEEP
     Dates: start: 201212

REACTIONS (4)
  - Cerebrovascular accident [Recovered/Resolved]
  - Convulsion [Recovered/Resolved]
  - Vomiting [Recovered/Resolved]
  - Nervousness [Unknown]
